FAERS Safety Report 9845166 (Version 1)
Quarter: 2014Q1

REPORT INFORMATION
  Report Type: Spontaneous
  Country: US (occurrence: None)
  Receive Date: 20140122
  Receipt Date: 20140122
  Transmission Date: 20141002
  Serious: Yes (Death)
  Sender: FDA-Public Use
  Company Number: B0960123A

PATIENT
  Age: 43 Year
  Sex: Female

DRUGS (5)
  1. BUPROPION HYDROCHLORIDE [Suspect]
     Route: 048
  2. METOPROLOL [Suspect]
     Route: 048
  3. CARISOPRODOL [Suspect]
     Route: 048
  4. DIAZEPAM [Suspect]
     Route: 048
  5. VALPROIC ACID [Suspect]
     Route: 048

REACTIONS (1)
  - Completed suicide [None]
